FAERS Safety Report 8532023 (Version 3)
Quarter: 2013Q4

REPORT INFORMATION
  Report Type: Spontaneous
  Country: US (occurrence: US)
  Receive Date: 20120426
  Receipt Date: 20131015
  Transmission Date: 20140711
  Serious: No
  Sender: FDA-Public Use
  Company Number: US-PFIZER INC-2012100147

PATIENT
  Age: 74 Year
  Sex: Female
  Weight: 81.63 kg

DRUGS (1)
  1. ALPRAZOLAM [Suspect]
     Dosage: 0.25 MG, 1X/DAY

REACTIONS (2)
  - Depression [Unknown]
  - Drug intolerance [Unknown]
